FAERS Safety Report 10158123 (Version 1)
Quarter: 2014Q2

REPORT INFORMATION
  Report Type: Spontaneous
  Country: ES (occurrence: ES)
  Receive Date: 20140507
  Receipt Date: 20140507
  Transmission Date: 20141212
  Serious: Yes (Hospitalization, Other)
  Sender: FDA-Public Use
  Company Number: ES-ACTAVIS-2014-09238

PATIENT
  Age: 83 Year
  Sex: Female

DRUGS (1)
  1. NYSTATIN (UNKNOWN) [Suspect]
     Indication: ORAL CANDIDIASIS
     Dosage: UNKNOWN
     Route: 065

REACTIONS (1)
  - Acute generalised exanthematous pustulosis [Recovering/Resolving]
